FAERS Safety Report 8319286-6 (Version None)
Quarter: 2012Q2

REPORT INFORMATION
  Report Type: 
  Country: None (occurrence: None)
  Receive Date: 20120427
  Receipt Date: 20090909
  Transmission Date: 20120825
  Serious: No
  Sender: FDA-Public Use
  Company Number: US-TEVA-2009010270

PATIENT
  Sex: Female

DRUGS (2)
  1. NARDIL                             /00037201/ [Concomitant]
  2. NUVIGIL [Suspect]
     Indication: DEPRESSION
     Dosage: 150 MILLIGRAM;
     Route: 048
     Dates: start: 20090908

REACTIONS (1)
  - DRUG EFFECT DECREASED [None]
